FAERS Safety Report 16562693 (Version 1)
Quarter: 2019Q3

REPORT INFORMATION
  Report Type: Spontaneous
  Country: GB (occurrence: GB)
  Receive Date: 20190711
  Receipt Date: 20190711
  Transmission Date: 20191004
  Serious: Yes (Other)
  Sender: FDA-Public Use
  Company Number: GB-SHIRE-GB201910443

PATIENT

DRUGS (1)
  1. 489 (LISDEXAMFETAMINE DIMESYLATE) [Suspect]
     Active Substance: LISDEXAMFETAMINE DIMESYLATE
     Indication: PRODUCT USED FOR UNKNOWN INDICATION
     Dosage: 30 MILLIGRAM
     Route: 065

REACTIONS (6)
  - Dependence [Unknown]
  - Mania [Unknown]
  - Feeling abnormal [Unknown]
  - Dysarthria [Unknown]
  - Paranoia [Unknown]
  - Aggression [Unknown]
